FAERS Safety Report 7301238-6 (Version None)
Quarter: 2011Q1

REPORT INFORMATION
  Report Type: 
  Country: None (occurrence: None)
  Receive Date: 20110218
  Receipt Date: 20110214
  Transmission Date: 20110831
  Serious: Yes (Other)
  Sender: FDA-Public Use
  Company Number: US-US-EMD SERONO, INC.-238337J08USA

PATIENT
  Sex: Female

DRUGS (5)
  1. REBIF [Suspect]
     Dates: start: 20080401
  2. REBIF [Suspect]
     Indication: MULTIPLE SCLEROSIS
     Route: 058
     Dates: start: 20071008, end: 20071203
  3. REBIF [Suspect]
     Route: 058
     Dates: start: 20080108, end: 20080215
  4. REBIF [Suspect]
     Route: 058
     Dates: start: 20110124
  5. LORTAB [Concomitant]
     Indication: PREMEDICATION

REACTIONS (6)
  - CARDIAC DISORDER [None]
  - CONSTIPATION [None]
  - INFLUENZA LIKE ILLNESS [None]
  - LUNG DISORDER [None]
  - INJECTION SITE REACTION [None]
  - VOMITING [None]
